FAERS Safety Report 12162473 (Version 2)
Quarter: 2016Q3

REPORT INFORMATION
  Report Type: Spontaneous
  Country: JP (occurrence: JP)
  Receive Date: 20160309
  Receipt Date: 20160706
  Transmission Date: 20161109
  Serious: Yes (Hospitalization, Other)
  Sender: FDA-Public Use
  Company Number: JP-PFIZER INC-2016139584

PATIENT
  Age: 17 Year
  Sex: Female
  Weight: 56 kg

DRUGS (9)
  1. LYRICA [Suspect]
     Active Substance: PREGABALIN
     Indication: HYPOAESTHESIA
     Dosage: 25 MG, 1X/DAY
     Route: 048
     Dates: start: 20160119, end: 20160128
  2. LYRICA [Suspect]
     Active Substance: PREGABALIN
     Dosage: 75 MG, DAILY (25 MG IN THE MORNING AND 50 MG IN THE EVENING)
     Route: 048
     Dates: start: 20160203, end: 20160204
  3. JUVELA N [Concomitant]
     Active Substance: TOCOPHERYL NICOTINATE, D-.ALPHA.
     Dosage: 100 MG, 3X/DAY
     Route: 048
     Dates: start: 20151214, end: 20160207
  4. LYRICA [Suspect]
     Active Substance: PREGABALIN
     Dosage: 25 MG, 2X/DAY
     Route: 048
     Dates: start: 20160129, end: 20160202
  5. MUCOSTA [Suspect]
     Active Substance: REBAMIPIDE
     Dosage: 100 MG, 1X/DAY
     Route: 048
     Dates: start: 20160119, end: 20160207
  6. LYRICA [Suspect]
     Active Substance: PREGABALIN
     Dosage: 75 MG, DAILY (50 MG IN THE MORNING AND 25 MG IN THE EVENING)
     Route: 048
     Dates: start: 20160205, end: 20160207
  7. LOXOPROFEN [Suspect]
     Active Substance: LOXOPROFEN
     Dosage: 60 MG, 1X/DAY
     Route: 048
     Dates: start: 20160119, end: 20160207
  8. KAKKONTO /07985901/ [Concomitant]
     Indication: NASOPHARYNGITIS
     Dosage: 5 DF, 2X/DAY
     Route: 048
     Dates: start: 20160127, end: 20160129
  9. MECOBALAMIN [Concomitant]
     Active Substance: METHYLCOBALAMIN
     Dosage: 500 UG, 3X/DAY
     Route: 048
     Dates: start: 20151214, end: 20160207

REACTIONS (9)
  - Abasia [Recovering/Resolving]
  - Asthenia [Recovering/Resolving]
  - Atonic seizures [Unknown]
  - Disease recurrence [Recovering/Resolving]
  - Dysstasia [Recovering/Resolving]
  - Somnolence [Recovered/Resolved]
  - Product use issue [Unknown]
  - Guillain-Barre syndrome [Recovering/Resolving]
  - Motor dysfunction [Recovering/Resolving]

NARRATIVE: CASE EVENT DATE: 20160119
